FAERS Safety Report 23181044 (Version 1)
Quarter: 2023Q4

REPORT INFORMATION
  Report Type: Spontaneous
  Country: US (occurrence: None)
  Receive Date: 20231113
  Receipt Date: 20231113
  Transmission Date: 20240109
  Serious: Yes (Hospitalization)
  Sender: FDA-Public Use
  Company Number: None

PATIENT
  Age: 81 Year
  Sex: Male
  Weight: 72 kg

DRUGS (8)
  1. ALFUZOSIN [Suspect]
     Active Substance: ALFUZOSIN
     Indication: Prostatomegaly
     Dosage: OTHER QUANTITY : 1 CAPSULE(S);?FREQUENCY : DAILY;?
     Route: 048
     Dates: start: 20231102, end: 20231103
  2. LOW DOSE ASPIRIN [Concomitant]
     Active Substance: ASPIRIN
  3. Metropol Tartrate [Concomitant]
  4. ROSUVASTATIN [Concomitant]
     Active Substance: ROSUVASTATIN
  5. EZETIMIBE [Concomitant]
     Active Substance: EZETIMIBE
  6. TRELEGY ELLIPTA [Concomitant]
     Active Substance: FLUTICASONE FUROATE\UMECLIDINIUM BROMIDE\VILANTEROL TRIFENATATE
  7. DUTASTERIDE [Concomitant]
     Active Substance: DUTASTERIDE
  8. OMEPRAZOLE [Concomitant]
     Active Substance: OMEPRAZOLE

REACTIONS (3)
  - Dizziness [None]
  - Disorientation [None]
  - Incoherent [None]

NARRATIVE: CASE EVENT DATE: 20231102
